FAERS Safety Report 4523251-4 (Version None)
Quarter: 2004Q4

REPORT INFORMATION
  Report Type: 
  Country: None (occurrence: None)
  Receive Date: 20041206
  Receipt Date: 20041119
  Transmission Date: 20050328
  Serious: Yes (Hospitalization)
  Sender: FDA-Public Use
  Company Number: 601647

PATIENT
  Age: 62 Year
  Sex: Male

DRUGS (1)
  1. RECOMBINATE [Suspect]
     Indication: FACTOR VIII DEFICIENCY
     Dosage: PRN; INTRAVENOUS
     Route: 042
     Dates: start: 20030306

REACTIONS (2)
  - INHIBITING ANTIBODIES [None]
  - POST PROCEDURAL COMPLICATION [None]
